FAERS Safety Report 25502028 (Version 1)
Quarter: 2025Q3

REPORT INFORMATION
  Report Type: Spontaneous
  Country: CN (occurrence: CN)
  Receive Date: 20250702
  Receipt Date: 20250702
  Transmission Date: 20251020
  Serious: Yes (Hospitalization)
  Sender: JIANGSU HENGRUI
  Company Number: CN-JIANGSU HENGRUI PHARMACEUTICALS CO., LTD.-H2025220944

PATIENT
  Age: 61 Year
  Weight: 57 kg

DRUGS (2)
  1. CYCLOPHOSPHAMIDE [Suspect]
     Active Substance: CYCLOPHOSPHAMIDE
     Indication: Breast cancer
     Dosage: 1 G, Q3W, D2
  2. PACLITAXEL [Suspect]
     Active Substance: PACLITAXEL
     Indication: Breast cancer
     Dosage: 400 MG, Q3W, D1

REACTIONS (6)
  - Leukopenia [Recovered/Resolved]
  - Neutrophil count decreased [Recovered/Resolved]
  - Platelet count decreased [Recovered/Resolved]
  - Transaminases increased [Recovered/Resolved]
  - Intestinal obstruction [Recovered/Resolved]
  - Pneumonitis [Recovered/Resolved]
